FAERS Safety Report 15728435 (Version 2)
Quarter: 2019Q1

REPORT INFORMATION
  Report Type: Report from Study
  Country: None (occurrence: US)
  Receive Date: 20181217
  Receipt Date: 20190313
  Transmission Date: 20190417
  Serious: Yes (Other)
  Sender: FDA-Public Use
  Company Number: US-ABBVIE-18K-163-2589542-00

PATIENT
  Age: 36 Year
  Sex: Male
  Weight: 77.18 kg

DRUGS (2)
  1. HUMIRA [Suspect]
     Active Substance: ADALIMUMAB
     Indication: PSORIATIC ARTHROPATHY
     Route: 058
     Dates: start: 2007
  2. HUMIRA [Suspect]
     Active Substance: ADALIMUMAB
     Indication: PSORIASIS

REACTIONS (5)
  - Device dispensing error [Unknown]
  - Injection site bruising [Unknown]
  - Cyst [Recovered/Resolved]
  - Nasopharyngitis [Unknown]
  - Cyst [Recovered/Resolved]

NARRATIVE: CASE EVENT DATE: 2011
